FAERS Safety Report 4893049-6 (Version None)
Quarter: 2005Q4

REPORT INFORMATION
  Report Type: 
  Country: None (occurrence: None)
  Receive Date: 20051220
  Receipt Date: 20050906
  Transmission Date: 20060501
  Serious: Yes (Other)
  Sender: FDA-Public Use
  Company Number: 417074

PATIENT
  Age: 73 Year
  Sex: Male

DRUGS (1)
  1. BONIVA [Suspect]
     Dosage: ORAL
     Route: 048
     Dates: start: 20050902

REACTIONS (4)
  - ASTHENIA [None]
  - INFLUENZA LIKE ILLNESS [None]
  - PAIN [None]
  - SHOULDER PAIN [None]
